FAERS Safety Report 11988444 (Version 1)
Quarter: 2016Q1

REPORT INFORMATION
  Report Type: Spontaneous
  Country: US (occurrence: US)
  Receive Date: 20160202
  Receipt Date: 20160202
  Transmission Date: 20160526
  Serious: Yes (Hospitalization, Other)
  Sender: FDA-Public Use
  Company Number: US-DSJP-DSU-2015-133935

PATIENT

DRUGS (1)
  1. BENICAR [Suspect]
     Active Substance: OLMESARTAN MEDOXOMIL
     Indication: BLOOD PRESSURE INCREASED
     Dosage: UNK
     Dates: start: 2011

REACTIONS (3)
  - Acute kidney injury [Unknown]
  - Irritable bowel syndrome [Unknown]
  - Malabsorption [Unknown]
